FAERS Safety Report 10039651 (Version 2)
Quarter: 2014Q1

REPORT INFORMATION
  Report Type: Spontaneous
  Country: US (occurrence: US)
  Receive Date: 20140326
  Receipt Date: 20140326
  Transmission Date: 20141002
  Serious: Yes (Other)
  Sender: FDA-Public Use
  Company Number: US-JNJFOC-20140302633

PATIENT
  Age: 84 Year
  Sex: Male
  Weight: 83 kg

DRUGS (13)
  1. IMBRUVICA [Suspect]
     Indication: MANTLE CELL LYMPHOMA
     Route: 048
     Dates: start: 20140204, end: 20140311
  2. IMBRUVICA [Suspect]
     Indication: MANTLE CELL LYMPHOMA
     Route: 048
     Dates: start: 20131206, end: 20140126
  3. DOCUSATE SODIUM [Concomitant]
     Route: 048
  4. NORCO [Concomitant]
     Route: 048
  5. IMODIUM AD [Concomitant]
     Route: 048
  6. KEFLEX [Concomitant]
  7. MULTIVITAMINS [Concomitant]
     Route: 048
  8. ONDANSETRON [Concomitant]
     Route: 048
  9. PROTONIX [Concomitant]
     Route: 048
     Dates: start: 20140211
  10. VITAMIN D [Concomitant]
     Route: 048
  11. WARFARIN [Concomitant]
     Route: 048
  12. NEXIUM [Concomitant]
     Route: 048
     Dates: start: 20140211
  13. FERROUS SULFATE-CYANOCOBALAMIN -FOLIC ACID [Concomitant]

REACTIONS (14)
  - Hepatic enzyme increased [Not Recovered/Not Resolved]
  - Dyspnoea [Unknown]
  - Contusion [Not Recovered/Not Resolved]
  - Vision blurred [Unknown]
  - Tremor [Not Recovered/Not Resolved]
  - Seborrhoeic keratosis [Unknown]
  - Nail discolouration [Unknown]
  - Neutrophil count decreased [Unknown]
  - Arthralgia [Not Recovered/Not Resolved]
  - Constipation [Unknown]
  - Fatigue [Unknown]
  - Dyspepsia [Unknown]
  - Neuropathy peripheral [Unknown]
  - Stomatitis [Unknown]
